FAERS Safety Report 4512316-9 (Version None)
Quarter: 2004Q4

REPORT INFORMATION
  Report Type: 
  Country: None (occurrence: None)
  Receive Date: 20041129
  Receipt Date: 20041116
  Transmission Date: 20050328
  Serious: Yes (Life-Threatening, Hospitalization, Congenital Anomaly)
  Sender: FDA-Public Use
  Company Number: GB-GLAXOSMITHKLINE-B0357178A

PATIENT
  Sex: Female

DRUGS (5)
  1. LAMOTRIGINE [Suspect]
     Indication: EPILEPSY
     Dosage: 200MG TWICE PER DAY
     Dates: start: 20040201
  2. KEPPRA [Suspect]
     Indication: EPILEPSY
     Dosage: 500MG TWICE PER DAY
     Dates: start: 20040201
  3. FERROUS SULFATE TAB [Concomitant]
  4. FOLIC ACID [Concomitant]
  5. EPILIM [Concomitant]
     Indication: EPILEPSY
     Dosage: 200MG TWICE PER DAY
     Dates: end: 20040201

REACTIONS (3)
  - CONGENITAL ATRIAL SEPTAL DEFECT [None]
  - DRUG EXPOSURE DURING PREGNANCY [None]
  - NEONATAL RESPIRATORY DISTRESS SYNDROME [None]
